FAERS Safety Report 10867886 (Version 1)
Quarter: 2015Q1

REPORT INFORMATION
  Report Type: Spontaneous
  Country: US (occurrence: US)
  Receive Date: 20150225
  Receipt Date: 20150225
  Transmission Date: 20150721
  Serious: Yes (Hospitalization)
  Sender: FDA-Public Use
  Company Number: US-TEVA-542769USA

PATIENT
  Age: 51 Year
  Sex: Female

DRUGS (2)
  1. TECFIDERA [Concomitant]
     Active Substance: DIMETHYL FUMARATE
  2. COPAXONE [Suspect]
     Active Substance: GLATIRAMER ACETATE
     Indication: MULTIPLE SCLEROSIS
     Dosage: 1 DOSE
     Route: 065
     Dates: start: 20140901, end: 20140905

REACTIONS (3)
  - Hypoaesthesia [Unknown]
  - Oedema peripheral [Unknown]
  - Joint swelling [Unknown]

NARRATIVE: CASE EVENT DATE: 20140901
